FAERS Safety Report 16066693 (Version 2)
Quarter: 2025Q3

REPORT INFORMATION
  Report Type: Spontaneous
  Country: US (occurrence: US)
  Receive Date: 20190313
  Receipt Date: 20250911
  Transmission Date: 20251021
  Serious: Yes (Hospitalization, Other)
  Sender: KYOWA
  Company Number: US-KYOWAKIRIN-2019BKK003824

PATIENT

DRUGS (3)
  1. CRYSVITA [Suspect]
     Active Substance: BUROSUMAB-TWZA
     Indication: Hypophosphataemia
     Dosage: 60 MG, 1X/2 WEEKS
     Route: 058
     Dates: start: 201805
  2. CRYSVITA [Suspect]
     Active Substance: BUROSUMAB-TWZA
     Indication: Hereditary hypophosphataemic rickets
     Dosage: 30 MG, 1X/2 WEEKS
     Route: 030
     Dates: start: 20180524
  3. CRYSVITA [Suspect]
     Active Substance: BUROSUMAB-TWZA
     Indication: Hereditary hypophosphataemic rickets
     Dosage: 10 MG, 1X/2 WEEKS
     Route: 058
     Dates: start: 201805

REACTIONS (1)
  - Acute disseminated encephalomyelitis [Not Recovered/Not Resolved]

NARRATIVE: CASE EVENT DATE: 20190306
